FAERS Safety Report 7390659-1 (Version None)
Quarter: 2011Q2

REPORT INFORMATION
  Report Type: 
  Country: None (occurrence: None)
  Receive Date: 20110404
  Receipt Date: 20110326
  Transmission Date: 20111010
  Serious: No
  Sender: FDA-Public Use
  Company Number: US-BIOGENIDEC-2010BI041562

PATIENT
  Age: 45 Year
  Sex: Female

DRUGS (4)
  1. COPAXONE [Concomitant]
  2. TYSABRI [Suspect]
     Route: 042
     Dates: start: 20080604, end: 20100310
  3. TYSABRI [Suspect]
     Indication: MULTIPLE SCLEROSIS
     Route: 042
     Dates: start: 20101022
  4. IMMUNE GLOBULIN INTRAVENOUS (HUMAN) [Concomitant]

REACTIONS (4)
  - URINARY TRACT INFECTION [None]
  - PYREXIA [None]
  - COGNITIVE DISORDER [None]
  - MALAISE [None]
